FAERS Safety Report 8880403 (Version 1)
Quarter: 2012Q4

REPORT INFORMATION
  Report Type: 
  Country: GB (occurrence: GB)
  Receive Date: 20121031
  Receipt Date: 20121031
  Transmission Date: 20130627
  Serious: Yes (Disabling, Other)
  Sender: FDA-Public Use
  Company Number: PHHY2012GB096276

PATIENT
  Age: 71 Year
  Sex: Male
  Weight: 92 kg

DRUGS (7)
  1. TAMSULOSIN [Suspect]
     Indication: RENAL TRANSPLANT
     Dates: start: 20120411, end: 201207
  2. PROGRAF [Suspect]
     Indication: RENAL TRANSPLANT
     Dates: start: 20120411
  3. MYCOPHENOLATE SODIUM [Concomitant]
     Indication: RENAL TRANSPLANT
     Dosage: 1 g, BID
     Route: 048
     Dates: end: 201206
  4. LEVOTHYROXINE [Concomitant]
     Dosage: 50 ug
     Route: 048
  5. AZITHROMYCIN [Concomitant]
     Dosage: 150 mg, QD
     Route: 048
  6. OMEPRAZOLE [Concomitant]
     Dosage: 20 mg, BID
     Route: 048
  7. CO-CODAMOL [Concomitant]

REACTIONS (2)
  - Visual impairment [Not Recovered/Not Resolved]
  - Diplopia [Not Recovered/Not Resolved]
